FAERS Safety Report 13523222 (Version 1)
Quarter: 2017Q2

REPORT INFORMATION
  Report Type: Spontaneous
  Country: US (occurrence: US)
  Receive Date: 20170508
  Receipt Date: 20170508
  Transmission Date: 20170830
  Serious: No
  Sender: FDA-Public Use
  Company Number: US-VIFOR (INTERNATIONAL) INC.-VIT-2017-01006

PATIENT
  Age: 73 Year
  Sex: Male

DRUGS (10)
  1. VELTASSA [Suspect]
     Active Substance: PATIROMER
     Indication: HYPERKALAEMIA
     Route: 048
  2. CLOPIDOGREL BISULFATE. [Concomitant]
     Active Substance: CLOPIDOGREL BISULFATE
  3. FUROSEMIDE. [Concomitant]
     Active Substance: FUROSEMIDE
  4. ALLOPURINOL. [Concomitant]
     Active Substance: ALLOPURINOL
  5. LYRICA [Concomitant]
     Active Substance: PREGABALIN
  6. INDAPAMIDE. [Concomitant]
     Active Substance: INDAPAMIDE
  7. NOVOLOG [Concomitant]
     Active Substance: INSULIN ASPART
  8. LOSARTAN POTASSIUM. [Concomitant]
     Active Substance: LOSARTAN POTASSIUM
  9. TRADJENTA [Concomitant]
     Active Substance: LINAGLIPTIN
  10. FISH OIL [Concomitant]
     Active Substance: FISH OIL

REACTIONS (2)
  - Vitreous floaters [Unknown]
  - Asthenia [Unknown]

NARRATIVE: CASE EVENT DATE: 20170126
